FAERS Safety Report 7257893-2 (Version None)
Quarter: 2011Q1

REPORT INFORMATION
  Report Type: 
  Country: None (occurrence: None)
  Receive Date: 20110129
  Receipt Date: 20100607
  Transmission Date: 20110831
  Serious: No
  Sender: FDA-Public Use
  Company Number: US-ABBOTT-10P-163-0649588-00

PATIENT
  Sex: Male
  Weight: 89.438 kg

DRUGS (5)
  1. HUMIRA [Suspect]
     Indication: CROHN'S DISEASE
     Route: 058
     Dates: start: 20100301, end: 20100521
  2. ROBINOL [Concomitant]
     Indication: PRODUCT USED FOR UNKNOWN INDICATION
  3. WELCHOL [Concomitant]
     Indication: CROHN'S DISEASE
  4. PENTASA [Concomitant]
     Indication: PRODUCT USED FOR UNKNOWN INDICATION
  5. PREVACID [Concomitant]
     Indication: PRODUCT USED FOR UNKNOWN INDICATION

REACTIONS (6)
  - RECTAL HAEMORRHAGE [None]
  - FREQUENT BOWEL MOVEMENTS [None]
  - MUSCLE SPASMS [None]
  - DRUG DOSE OMISSION [None]
  - CROHN'S DISEASE [None]
  - STRESS [None]
